FAERS Safety Report 18611656 (Version 1)
Quarter: 2020Q4

REPORT INFORMATION
  Report Type: Spontaneous
  Country: US (occurrence: US)
  Receive Date: 20201214
  Receipt Date: 20201214
  Transmission Date: 20210114
  Serious: No
  Sender: FDA-Public Use
  Company Number: US-TEVA-2020-US-1859123

PATIENT
  Sex: Female

DRUGS (11)
  1. ADDERALL [Suspect]
     Active Substance: AMPHETAMINE ASPARTATE\AMPHETAMINE SULFATE\DEXTROAMPHETAMINE SACCHARATE\DEXTROAMPHETAMINE SULFATE
     Indication: ASTHENIA
     Route: 065
  2. TECFIDERA [Concomitant]
     Active Substance: DIMETHYL FUMARATE
  3. AUBAGIO [Concomitant]
     Active Substance: TERIFLUNOMIDE
  4. COPAXONE [Concomitant]
     Active Substance: GLATIRAMER ACETATE
  5. VITAMIN D3 [Concomitant]
     Active Substance: CHOLECALCIFEROL
  6. TIZANIDINE. [Concomitant]
     Active Substance: TIZANIDINE
  7. TYLENOL [Concomitant]
     Active Substance: ACETAMINOPHEN
  8. KETOROLAC [Concomitant]
     Active Substance: KETOROLAC TROMETHAMINE
  9. MELOXICAM. [Concomitant]
     Active Substance: MELOXICAM
  10. ROPINIROLE. [Concomitant]
     Active Substance: ROPINIROLE
  11. BENADRYL [Concomitant]
     Active Substance: DIPHENHYDRAMINE HYDROCHLORIDE

REACTIONS (2)
  - Drug ineffective [Unknown]
  - Sleep disorder [Unknown]
